FAERS Safety Report 15227820 (Version 1)
Quarter: 2018Q3

REPORT INFORMATION
  Report Type: Spontaneous
  Country: US (occurrence: US)
  Receive Date: 20180706
  Receipt Date: 20180706
  Transmission Date: 20181010
  Serious: No
  Sender: FDA-Public Use
  Company Number: None

PATIENT
  Age: 64 Year
  Sex: Female
  Weight: 68.49 kg

DRUGS (2)
  1. LISINOPRIL. [Suspect]
     Active Substance: LISINOPRIL
     Indication: HYPERTENSION
     Route: 048
     Dates: start: 20091116, end: 20180303
  2. METRONIDAZOLE. [Suspect]
     Active Substance: METRONIDAZOLE
     Route: 048
     Dates: start: 20180301, end: 20180303

REACTIONS (2)
  - Gambling disorder [None]
  - Angioedema [None]

NARRATIVE: CASE EVENT DATE: 20180303
